FAERS Safety Report 21027944 (Version 1)
Quarter: 2022Q2

REPORT INFORMATION
  Report Type: Spontaneous
  Country: US (occurrence: None)
  Receive Date: 20220630
  Receipt Date: 20220630
  Transmission Date: 20220720
  Serious: Yes (Other)
  Sender: FDA-Public Use
  Company Number: None

PATIENT
  Age: 57 Year
  Sex: Female
  Weight: 49.9 kg

DRUGS (14)
  1. ENBREL [Suspect]
     Active Substance: ETANERCEPT
     Indication: Spondyloarthropathy
     Dosage: OTHER FREQUENCY : WEEKLY;?
     Route: 058
  2. OMEPRAZOLE [Concomitant]
     Active Substance: OMEPRAZOLE
  3. FOLIC ACID [Concomitant]
     Active Substance: FOLIC ACID
  4. AMITRIPTYLINE [Concomitant]
     Active Substance: AMITRIPTYLINE
  5. Chlorhexadine solution [Concomitant]
  6. hydrocortisone rectal cream [Concomitant]
  7. LINZESS [Concomitant]
     Active Substance: LINACLOTIDE
  8. SUCRALFATE [Concomitant]
     Active Substance: SUCRALFATE
  9. SULFASALAZINE [Concomitant]
     Active Substance: SULFASALAZINE
  10. DICLOFENAC [Concomitant]
     Active Substance: DICLOFENAC
  11. ACETAMINOPHEN [Concomitant]
     Active Substance: ACETAMINOPHEN
  12. GLYCERIN SUPPOSITORY [Concomitant]
     Active Substance: GLYCERIN
  13. NURTEC ODT [Concomitant]
     Active Substance: RIMEGEPANT SULFATE
  14. UBRELVY [Concomitant]
     Active Substance: UBROGEPANT

REACTIONS (1)
  - Cluster headache [None]

NARRATIVE: CASE EVENT DATE: 20220629
